FAERS Safety Report 11594013 (Version 1)
Quarter: 2015Q4

REPORT INFORMATION
  Report Type: Spontaneous
  Country: US (occurrence: US)
  Receive Date: 20151005
  Receipt Date: 20151005
  Transmission Date: 20160304
  Serious: No
  Sender: FDA-Public Use
  Company Number: US-LPDUSPRD-20150079

PATIENT
  Age: 64 Year
  Sex: Female

DRUGS (1)
  1. TRANEXAMIC ACID INJECTION(0517-0960-01) [Suspect]
     Active Substance: TRANEXAMIC ACID
     Dosage: MIXED 3 GM/100 ML
     Route: 014

REACTIONS (2)
  - Incorrect route of drug administration [Unknown]
  - Extravasation [Unknown]
